FAERS Safety Report 13424697 (Version 1)
Quarter: 2017Q2

REPORT INFORMATION
  Report Type: Spontaneous
  Country: US (occurrence: US)
  Receive Date: 20170410
  Receipt Date: 20170410
  Transmission Date: 20170830
  Serious: Yes (Other)
  Sender: FDA-Public Use
  Company Number: US-BAUSCH-BL-2017-005347

PATIENT
  Age: 75 Year
  Sex: Male
  Weight: 83.08 kg

DRUGS (8)
  1. AVODART [Concomitant]
     Active Substance: DUTASTERIDE
     Indication: BENIGN PROSTATIC HYPERPLASIA
  2. UROXATRAL [Concomitant]
     Active Substance: ALFUZOSIN HYDROCHLORIDE
     Indication: PRODUCT USED FOR UNKNOWN INDICATION
  3. CHLORDIAZEPOXIDE. [Suspect]
     Active Substance: CHLORDIAZEPOXIDE
     Indication: PANIC ATTACK
     Route: 048
     Dates: start: 201608
  4. CHLORDIAZEPOXIDE. [Suspect]
     Active Substance: CHLORDIAZEPOXIDE
     Dosage: ONE BEFORE LUNCH AND ONE AROUND 9 PM
     Route: 048
     Dates: start: 201702
  5. HYDROCHLOROTHIAZIDE. [Concomitant]
     Active Substance: HYDROCHLOROTHIAZIDE
     Indication: PRODUCT USED FOR UNKNOWN INDICATION
  6. OCUVITE [Concomitant]
     Active Substance: VITAMINS
     Indication: PRODUCT USED FOR UNKNOWN INDICATION
  7. CHLORDIAZEPOXIDE. [Suspect]
     Active Substance: CHLORDIAZEPOXIDE
     Indication: ANXIETY
     Route: 048
     Dates: start: 201608
  8. METOPROLOL SUCCINATE. [Concomitant]
     Active Substance: METOPROLOL SUCCINATE
     Indication: PRODUCT USED FOR UNKNOWN INDICATION

REACTIONS (9)
  - Dysphagia [Unknown]
  - Drug ineffective [Unknown]
  - Flatulence [Unknown]
  - Eructation [Unknown]
  - Constipation [Unknown]
  - Insomnia [Unknown]
  - Respiration abnormal [Recovering/Resolving]
  - Aerophagia [Unknown]
  - Macular degeneration [Unknown]

NARRATIVE: CASE EVENT DATE: 201608
